FAERS Safety Report 7912980-8 (Version None)
Quarter: 2011Q4

REPORT INFORMATION
  Report Type: 
  Country: None (occurrence: None)
  Receive Date: 20111114
  Receipt Date: 20111107
  Transmission Date: 20120403
  Serious: Yes (Death, Hospitalization, Other)
  Sender: FDA-Public Use
  Company Number: US-BAYER-201026827NA

PATIENT
  Age: 45 Year
  Sex: Female
  Weight: 74.376 kg

DRUGS (7)
  1. TRACLEER [Concomitant]
     Dosage: 125 MG, QID
     Route: 048
  2. ZITHROMAX [Concomitant]
     Dosage: 250 MG, UNK
     Route: 048
  3. YASMIN [Suspect]
     Dosage: UNK
     Route: 048
     Dates: start: 20050912, end: 20051004
  4. SIMVASTATIN [Concomitant]
     Dosage: 10 MG, QD
     Route: 048
  5. VITAMIN B-12 [Concomitant]
     Dosage: 1000 MCG/ML, Q1MON
     Route: 030
  6. MEDROL [Concomitant]
     Dosage: 4 MG, UNK
     Route: 048
  7. TRAMADOL HYDROCHLORIDE [Concomitant]
     Dosage: 100 MG, QD
     Route: 048

REACTIONS (6)
  - CARDIO-RESPIRATORY ARREST [None]
  - PULMONARY EMBOLISM [None]
  - PULMONARY HYPERTENSION [None]
  - RESPIRATORY DISTRESS [None]
  - PAIN [None]
  - DYSPNOEA [None]
